FAERS Safety Report 25915458 (Version 2)
Quarter: 2025Q4

REPORT INFORMATION
  Report Type: Report from Study
  Country: US (occurrence: US)
  Receive Date: 20251013
  Receipt Date: 20251110
  Transmission Date: 20260117
  Serious: Yes (Hospitalization)
  Sender: TAKEDA
  Company Number: US-SHIRE-US202021969

PATIENT
  Age: 69 Year
  Sex: Female

DRUGS (4)
  1. HUMAN IMMUNOGLOBULIN G [Suspect]
     Active Substance: HUMAN IMMUNOGLOBULIN G
     Indication: Immunodeficiency common variable
     Dosage: 30 GRAM, Q2WEEKS
  2. HUMAN IMMUNOGLOBULIN G [Suspect]
     Active Substance: HUMAN IMMUNOGLOBULIN G
     Indication: Primary immunodeficiency syndrome
     Dosage: UNK
  3. COVID-19 VACCINE NOS [Suspect]
     Active Substance: COVID-19 VACCINE
     Indication: COVID-19 immunisation
     Dosage: UNK
  4. LISINOPRIL [Concomitant]
     Active Substance: LISINOPRIL
     Dosage: UNK UNK, QD

REACTIONS (24)
  - Fractured sacrum [Recovering/Resolving]
  - Sinus disorder [Recovering/Resolving]
  - Endoscopy abnormal [Unknown]
  - Energy increased [Unknown]
  - Ear infection [Recovering/Resolving]
  - Multiple allergies [Unknown]
  - Scratch [Recovering/Resolving]
  - Stress [Unknown]
  - Noninfective gingivitis [Unknown]
  - Device infusion issue [Unknown]
  - COVID-19 [Recovered/Resolved]
  - Panic attack [Unknown]
  - Spinal disorder [Unknown]
  - Product dose omission in error [Unknown]
  - Heart rate increased [Unknown]
  - Feeling abnormal [Unknown]
  - Vision blurred [Unknown]
  - Oropharyngeal pain [Unknown]
  - Anxiety [Unknown]
  - Infusion site discomfort [Unknown]
  - Blood pressure increased [Unknown]
  - Injection site pain [Unknown]
  - Dizziness [Unknown]
  - Fatigue [Recovering/Resolving]

NARRATIVE: CASE EVENT DATE: 20240109
